FAERS Safety Report 6593606-5 (Version None)
Quarter: 2010Q1

REPORT INFORMATION
  Report Type: 
  Country: None (occurrence: None)
  Receive Date: 20100222
  Receipt Date: 20090825
  Transmission Date: 20100710
  Serious: No
  Sender: FDA-Public Use
  Company Number: US-BRISTOL-MYERS SQUIBB COMPANY-14754360

PATIENT
  Sex: Female

DRUGS (1)
  1. ORENCIA [Suspect]
     Indication: RHEUMATOID ARTHRITIS
     Dosage: 1 DF- 4 VIALS
     Route: 042
     Dates: start: 20090820

REACTIONS (4)
  - ARTHRALGIA [None]
  - DIARRHOEA [None]
  - HEADACHE [None]
  - NAUSEA [None]
